FAERS Safety Report 8156882-3 (Version None)
Quarter: 2012Q1

REPORT INFORMATION
  Report Type: 
  Country: None (occurrence: None)
  Receive Date: 20120222
  Receipt Date: 20120217
  Transmission Date: 20120608
  Serious: Yes (Hospitalization)
  Sender: FDA-Public Use
  Company Number: FR-GLAXOSMITHKLINE-B0779075A

PATIENT
  Sex: Female

DRUGS (15)
  1. NITROGLYCERIN [Concomitant]
  2. PRAVIGARD PAC (COPACKAGED) [Concomitant]
  3. ZOVIRAX [Suspect]
     Indication: MENINGITIS ASEPTIC
     Dosage: 700MG THREE TIMES PER DAY
     Route: 042
     Dates: start: 20120113, end: 20120118
  4. ALDALIX [Concomitant]
  5. SPIRIVA [Concomitant]
  6. AMOXICILLIN [Suspect]
     Indication: MENINGITIS ASEPTIC
     Dosage: 3.5G FOUR TIMES PER DAY
     Route: 042
     Dates: start: 20120113, end: 20120118
  7. METFORMIN HCL [Concomitant]
  8. ACTONEL [Concomitant]
  9. AUGMENTIN '125' [Concomitant]
     Dates: start: 20120109
  10. SYMBICORT [Concomitant]
  11. ALLOPURINOL [Concomitant]
  12. LEVOTHYROXINE SODIUM [Concomitant]
  13. CLAFORAN [Suspect]
     Indication: MENINGITIS ASEPTIC
     Dosage: 1G THREE TIMES PER DAY
     Route: 042
     Dates: start: 20120113, end: 20120118
  14. AMLODIPINE [Concomitant]
  15. CLARITHROMYCIN [Concomitant]
     Indication: BRONCHITIS
     Dates: start: 20120107

REACTIONS (2)
  - CONFUSIONAL STATE [None]
  - RENAL FAILURE ACUTE [None]
